FAERS Safety Report 20569356 (Version 1)
Quarter: 2022Q1

REPORT INFORMATION
  Report Type: Spontaneous
  Country: US (occurrence: US)
  Receive Date: 20220308
  Receipt Date: 20220308
  Transmission Date: 20220423
  Serious: No
  Sender: FDA-Public Use
  Company Number: US-SA-SAC20220302001563

PATIENT
  Sex: Female

DRUGS (1)
  1. DUPIXENT [Suspect]
     Active Substance: DUPILUMAB
     Indication: Acne
     Dosage: 200 MG, QOW
     Route: 058

REACTIONS (2)
  - Allergy to synthetic fabric [Not Recovered/Not Resolved]
  - Product use in unapproved indication [Unknown]
